FAERS Safety Report 10021227 (Version 1)
Quarter: 2014Q1

REPORT INFORMATION
  Report Type: Spontaneous
  Country: US (occurrence: None)
  Receive Date: 20140318
  Receipt Date: 20140318
  Transmission Date: 20141002
  Serious: No
  Sender: FDA-Public Use
  Company Number: None

PATIENT
  Age: 19 Year
  Sex: Male
  Weight: 65.77 kg

DRUGS (1)
  1. BACTRIM DS [Suspect]
     Indication: SINUSITIS
     Dosage: 2 PILLS
     Route: 048
     Dates: start: 20140306, end: 20140314

REACTIONS (3)
  - Rash generalised [None]
  - Pruritus [None]
  - Sepsis [None]
